FAERS Safety Report 16875471 (Version 1)
Quarter: 2019Q4

REPORT INFORMATION
  Report Type: Other
  Country: ES (occurrence: ES)
  Receive Date: 20191002
  Receipt Date: 20191002
  Transmission Date: 20200122
  Serious: Yes (Hospitalization, Other)
  Sender: FDA-Public Use
  Company Number: ES-DEXPHARM-20190843

PATIENT
  Age: 87 Year
  Sex: Female

DRUGS (13)
  1. METHOTREXATE. [Interacting]
     Active Substance: METHOTREXATE
     Indication: RHEUMATOID ARTHRITIS
  2. LORMETAZEPAM [Concomitant]
     Active Substance: LORMETAZEPAM
  3. CALCIFEDIOL [Concomitant]
     Active Substance: CALCIFEDIOL
  4. OMEPRAZOLE. [Suspect]
     Active Substance: OMEPRAZOLE
     Indication: PRODUCT USED FOR UNKNOWN INDICATION
  5. ASPIRIN. [Interacting]
     Active Substance: ASPIRIN
     Indication: PRODUCT USED FOR UNKNOWN INDICATION
  6. GALANTAMINE. [Concomitant]
     Active Substance: GALANTAMINE
  7. FUROSEMIDE. [Concomitant]
     Active Substance: FUROSEMIDE
  8. METHYLPREDNISOLONE. [Concomitant]
     Active Substance: METHYLPREDNISOLONE
  9. RISPERIDONE. [Concomitant]
     Active Substance: RISPERIDONE
  10. ALLOPURINOL. [Concomitant]
     Active Substance: ALLOPURINOL
  11. FOLIC ACID. [Concomitant]
     Active Substance: FOLIC ACID
     Indication: PRODUCT USED FOR UNKNOWN INDICATION
  12. ATORVASTATIN [Concomitant]
     Active Substance: ATORVASTATIN
  13. DENOSUMAB [Concomitant]
     Active Substance: DENOSUMAB

REACTIONS (3)
  - Drug interaction [Recovered/Resolved]
  - Pancytopenia [Recovered/Resolved]
  - Hepatitis [Recovered/Resolved]
